FAERS Safety Report 12580013 (Version 2)
Quarter: 2016Q3

REPORT INFORMATION
  Report Type: Spontaneous
  Country: US (occurrence: US)
  Receive Date: 20160721
  Receipt Date: 20160729
  Transmission Date: 20161109
  Serious: No
  Sender: FDA-Public Use
  Company Number: US-PFIZER INC-3043249

PATIENT
  Age: 64 Year
  Sex: Male
  Weight: 104.7 kg

DRUGS (1)
  1. CIPROFLOXACIN. [Suspect]
     Active Substance: CIPROFLOXACIN
     Indication: PREOPERATIVE CARE
     Dosage: 400 MG, 1X/DAY
     Route: 042
     Dates: start: 20150916, end: 20150916

REACTIONS (2)
  - Infusion site pruritus [Recovered/Resolved]
  - Infusion site pain [Recovered/Resolved]

NARRATIVE: CASE EVENT DATE: 20150916
